FAERS Safety Report 10098397 (Version 2)
Quarter: 2014Q2

REPORT INFORMATION
  Report Type: Spontaneous
  Country: IT (occurrence: IT)
  Receive Date: 20140423
  Receipt Date: 20140428
  Transmission Date: 20141212
  Serious: Yes (Hospitalization)
  Sender: FDA-Public Use
  Company Number: PHHY2014IT047426

PATIENT
  Age: 5 Year
  Sex: Female

DRUGS (2)
  1. EXJADE [Suspect]
     Indication: THALASSAEMIA
     Dosage: 500 MG, DAILY
     Route: 048
     Dates: start: 20111127, end: 20140312
  2. EXJADE [Suspect]
     Dosage: 625 MG, DAILY
     Route: 048
     Dates: start: 20140313, end: 20140410

REACTIONS (10)
  - Metabolic acidosis [Recovering/Resolving]
  - Hyponatraemia [Recovering/Resolving]
  - Hypokalaemia [Recovering/Resolving]
  - Hypophosphataemia [Recovering/Resolving]
  - Haematemesis [Recovering/Resolving]
  - Melaena [Recovering/Resolving]
  - Renal tubular disorder [Recovering/Resolving]
  - Glycosuria [Recovering/Resolving]
  - Gastric ulcer [Recovering/Resolving]
  - Duodenal ulcer [Recovering/Resolving]
